FAERS Safety Report 7169905-5 (Version None)
Quarter: 2010Q4

REPORT INFORMATION
  Report Type: 
  Country: None (occurrence: None)
  Receive Date: 20101203
  Receipt Date: 20101115
  Transmission Date: 20110411
  Serious: Yes (Life-Threatening)
  Sender: FDA-Public Use
  Company Number: 201011AGG00961

PATIENT
  Sex: Female

DRUGS (2)
  1. TIROFIBAN HYDROCHLORIDE (AGGRASTAT (TIROFIBAN HYDROCHLORIDE)) [Suspect]
     Indication: CATHETERISATION CARDIAC
  2. HEPARIN [Suspect]

REACTIONS (5)
  - HAEMORRHAGE [None]
  - HAEMORRHAGIC DIATHESIS [None]
  - HEPARIN-INDUCED THROMBOCYTOPENIA [None]
  - PLATELET FUNCTION TEST ABNORMAL [None]
  - THROMBOCYTOPENIA [None]
